FAERS Safety Report 4426511-0 (Version None)
Quarter: 2004Q3

REPORT INFORMATION
  Report Type: 
  Country: None (occurrence: None)
  Receive Date: 20040812
  Receipt Date: 20040812
  Transmission Date: 20050211
  Serious: Yes (Hospitalization)
  Sender: FDA-Public Use
  Company Number: None

PATIENT
  Age: 56 Year
  Sex: Male
  Weight: 48.5 kg

DRUGS (6)
  1. PHENYTOIN [Suspect]
     Indication: CONVULSION
     Dosage: 300 MG BID   ORAL
     Route: 048
  2. CREAON [Concomitant]
  3. FOLIC ACID [Concomitant]
  4. FUROSEMIDE [Concomitant]
  5. M.V.I. [Concomitant]
  6. RANITIDINE [Concomitant]

REACTIONS (3)
  - ASTHENIA [None]
  - DRUG LEVEL INCREASED [None]
  - DYSARTHRIA [None]
